FAERS Safety Report 16882810 (Version 1)
Quarter: 2019Q4

REPORT INFORMATION
  Report Type: Spontaneous
  Country: DE (occurrence: DE)
  Receive Date: 20191003
  Receipt Date: 20191003
  Transmission Date: 20200122
  Serious: Yes (Congenital Anomaly, Other)
  Sender: FDA-Public Use
  Company Number: DE-AUROBINDO-AUR-APL-2019-063806

PATIENT
  Age: 1 Day
  Sex: Female
  Weight: 3.46 kg

DRUGS (11)
  1. VIANI [Concomitant]
     Active Substance: FLUTICASONE PROPIONATE\SALMETEROL XINAFOATE
     Indication: ASTHMA
     Dosage: UNK
     Route: 064
     Dates: start: 20170922, end: 20180626
  2. SALBUTAMOL [Concomitant]
     Active Substance: ALBUTEROL
     Indication: ASTHMA
     Dosage: UNK, VERY SELDOM, ONLY IF REQUIRED. PROBABLY EVERY 4 TO 5 WEEKS ONCE.
     Route: 064
  3. NIFEDIPIN [Suspect]
     Active Substance: NIFEDIPINE
     Indication: HYPERTENSION
     Dosage: 20 MILLIGRAM, TWO TIMES A DAY
     Route: 064
  4. CITALOPRAM [Suspect]
     Active Substance: CITALOPRAM HYDROBROMIDE
     Indication: DEPRESSION
     Dosage: 20 MILLIGRAM, ONCE A DAY
     Route: 064
     Dates: start: 20170922, end: 20180626
  5. VIVIDRIN AKUT [Concomitant]
     Indication: MITE ALLERGY
     Dosage: UNK, (ONLY IF REQUIRED)
     Route: 064
  6. HCT DEXCEL [Suspect]
     Active Substance: HYDROCHLOROTHIAZIDE
     Indication: HYPERTENSION
     Dosage: 12.5 MILLIGRAM, ONCE A DAY
     Route: 064
     Dates: start: 20170922, end: 20180626
  7. AMLODIPINE [Suspect]
     Active Substance: AMLODIPINE BESYLATE
     Indication: HYPERTENSION
     Dosage: 10 MILLIGRAM, ONCE A DAY
     Route: 064
  8. METOHEXAL [Suspect]
     Active Substance: METOPROLOL
     Indication: HYPERTENSION
     Dosage: 142.5 MILLIGRAM, DAILY ((95-0-47.5)
     Route: 064
     Dates: start: 20170922, end: 20180626
  9. L-THYROXIN [Concomitant]
     Active Substance: LEVOTHYROXINE SODIUM
     Indication: HYPOTHYROIDISM
     Dosage: 100 MICROGRAM, DAILY 100 [?G/D (BIS 50 ?G/D) ]
     Route: 064
     Dates: start: 20170922, end: 20180626
  10. ECURAL [Concomitant]
     Active Substance: MOMETASONE
     Indication: NEURODERMATITIS
     Dosage: UNK, ONTO VERY SMALL AREA
     Route: 064
  11. VIGANTOLETTEN [Concomitant]
     Active Substance: CHOLECALCIFEROL
     Indication: VITAMIN D DEFICIENCY
     Dosage: UNK, 1000 [I.E./D ]
     Route: 064
     Dates: start: 20170922, end: 20180626

REACTIONS (3)
  - Arrhythmia neonatal [Recovered/Resolved]
  - Atrial septal defect [Not Recovered/Not Resolved]
  - Foetal exposure during pregnancy [Unknown]

NARRATIVE: CASE EVENT DATE: 20180626
